FAERS Safety Report 21418020 (Version 2)
Quarter: 2022Q4

REPORT INFORMATION
  Report Type: Spontaneous
  Country: GB (occurrence: GB)
  Receive Date: 20221006
  Receipt Date: 20221021
  Transmission Date: 20230113
  Serious: Yes (Other)
  Sender: FDA-Public Use
  Company Number: GB-GSKCCFEMEA-Case-01582328_AE-62812

PATIENT

DRUGS (1)
  1. TRELEGY ELLIPTA [Suspect]
     Active Substance: FLUTICASONE FUROATE\UMECLIDINIUM BROMIDE\VILANTEROL TRIFENATATE
     Indication: Chronic obstructive pulmonary disease
     Dosage: UNK, QD, ONE DOSE IN THE MORNING EACH DAY, 92/55/22 MCG

REACTIONS (5)
  - Dementia [Unknown]
  - Mental disorder [Unknown]
  - Condition aggravated [Unknown]
  - Product dose omission issue [Unknown]
  - Product complaint [Unknown]
